FAERS Safety Report 15056624 (Version 2)
Quarter: 2018Q3

REPORT INFORMATION
  Report Type: Spontaneous
  Country: US (occurrence: US)
  Receive Date: 20180623
  Receipt Date: 20180816
  Transmission Date: 20181010
  Serious: No
  Sender: FDA-Public Use
  Company Number: US-JNJFOC-20180614578

PATIENT
  Age: 35 Year
  Sex: Male
  Weight: 90.72 kg

DRUGS (3)
  1. FAZACLO [Concomitant]
     Active Substance: CLOZAPINE
     Dosage: IN EVENING
     Route: 048
  2. VISTARIL [Concomitant]
     Active Substance: HYDROXYZINE PAMOATE
     Dosage: AS NEEDED
     Route: 048
  3. RISPERDAL CONSTA [Suspect]
     Active Substance: RISPERIDONE
     Indication: SCHIZOPHRENIA
     Route: 030
     Dates: start: 2006

REACTIONS (3)
  - Device leakage [Unknown]
  - Drug dose omission [Unknown]
  - Device occlusion [Unknown]

NARRATIVE: CASE EVENT DATE: 20180611
